FAERS Safety Report 4280321-6 (Version None)
Quarter: 2004Q1

REPORT INFORMATION
  Report Type: 
  Country: None (occurrence: None)
  Receive Date: 20040126
  Receipt Date: 20030115
  Transmission Date: 20041129
  Serious: Yes (Hospitalization)
  Sender: FDA-Public Use
  Company Number: 2003-110430-NL

PATIENT
  Age: 45 Year
  Sex: Male

DRUGS (4)
  1. MIRTAZAPINE [Suspect]
     Dosage: 30 MG, ORAL
     Route: 048
     Dates: end: 20030203
  2. CARBAMAZEPINE [Suspect]
     Dosage: 200 MG/300 MG, ORAL
     Route: 048
     Dates: start: 20030204, end: 20030205
  3. CLOMETHIAZOLE EDISILATE [Suspect]
     Dosage: 11 DF/14 DF/3 DF, ORAL
     Route: 048
     Dates: start: 20030204, end: 20030205
  4. CLOMETHIAZOLE EDISILATE [Suspect]
     Dosage: 11 DF/14 DF/3 DF, ORAL
     Route: 048
     Dates: start: 20030213, end: 20030215

REACTIONS (5)
  - ABDOMINAL PAIN UPPER [None]
  - ALCOHOL POISONING [None]
  - HEPATIC ENZYME INCREASED [None]
  - HEPATIC FAILURE [None]
  - RENAL CYST [None]
